FAERS Safety Report 8788661 (Version 3)
Quarter: 2012Q4

REPORT INFORMATION
  Report Type: 
  Country: IT (occurrence: IT)
  Receive Date: 20120915
  Receipt Date: 20121002
  Transmission Date: 20130627
  Serious: Yes (Hospitalization)
  Sender: FDA-Public Use
  Company Number: IT-ABBOTT-12P-083-0979901-00

PATIENT
  Age: 29 Year
  Sex: Female

DRUGS (5)
  1. DEPAKINE [Suspect]
     Indication: INTENTIONAL SELF-INJURY
     Dosage: 10 dosage form; Total
     Route: 048
     Dates: start: 20120904, end: 20120904
  2. MIRTAZAPINE [Suspect]
     Indication: INTENTIONAL SELF-INJURY
     Dosage: 600mg; total
     Route: 048
     Dates: start: 20120904, end: 20120904
  3. XANAX [Suspect]
     Indication: INTENTIONAL SELF-INJURY
     Dosage: 10 dosage from; Total
     Route: 048
     Dates: start: 20120904, end: 20120904
  4. VALDORM [Suspect]
     Indication: INTENTIONAL SELF-INJURY
     Dosage: 11 dosage form once
     Route: 065
  5. VENLAFAXINE HYDROCHLORIDE [Suspect]
     Indication: INTENTIONAL SELF-INJURY
     Dosage: 11 dosage forms once
     Route: 065

REACTIONS (4)
  - Toxicity to various agents [Recovering/Resolving]
  - Intentional overdose [Unknown]
  - Agitation [Recovering/Resolving]
  - Sopor [Recovering/Resolving]
